FAERS Safety Report 6956757-9 (Version None)
Quarter: 2010Q3

REPORT INFORMATION
  Report Type: 
  Country: None (occurrence: None)
  Receive Date: 20100826
  Receipt Date: 20100815
  Transmission Date: 20110219
  Serious: Yes (Other)
  Sender: FDA-Public Use
  Company Number: A-CH2010-39031

PATIENT
  Age: 49 Year
  Sex: Male

DRUGS (1)
  1. TRACLEER [Suspect]
     Indication: IDIOPATHIC PULMONARY FIBROSIS
     Dosage: ORAL
     Route: 048
     Dates: start: 20060101

REACTIONS (3)
  - NON-SMALL CELL LUNG CANCER METASTATIC [None]
  - OFF LABEL USE [None]
  - REBOUND EFFECT [None]
